FAERS Safety Report 21662867 (Version 1)
Quarter: 2022Q4

REPORT INFORMATION
  Report Type: Spontaneous
  Country: JP (occurrence: JP)
  Receive Date: 20221130
  Receipt Date: 20221130
  Transmission Date: 20230113
  Serious: Yes (Hospitalization, Other)
  Sender: FDA-Public Use
  Company Number: JP-MLMSERVICE-20210211-2717041-1

PATIENT
  Age: 78 Year
  Sex: Female

DRUGS (2)
  1. LIDOCAINE [Suspect]
     Active Substance: LIDOCAINE
     Indication: Trigger points
     Dosage: UNK
     Route: 008
  2. ASPIRIN [Concomitant]
     Active Substance: ASPIRIN
     Indication: Cerebral infarction
     Dosage: 100 MG
     Route: 048

REACTIONS (2)
  - Renal haematoma [Recovered/Resolved with Sequelae]
  - Acute kidney injury [Recovered/Resolved]
